FAERS Safety Report 26055524 (Version 1)
Quarter: 2025Q4

REPORT INFORMATION
  Report Type: Spontaneous
  Country: US (occurrence: US)
  Receive Date: 20251117
  Receipt Date: 20251117
  Transmission Date: 20260117
  Serious: No
  Sender: TIANJIN TIANYAO PHARMACEUTICALS CO.,LTD.
  Company Number: US-tianyaoyaoye-2025-tjpc-000004

PATIENT
  Age: 42 Year
  Sex: Male
  Weight: 74.84 kg

DRUGS (5)
  1. METHYLPREDNISOLONE [Suspect]
     Active Substance: METHYLPREDNISOLONE
     Indication: Nerve compression
     Dosage: ON 06/19/2025, CONSUMED 06 TABLETS ORALLY
     Route: 048
     Dates: start: 20250619, end: 20250619
  2. METHYLPREDNISOLONE [Suspect]
     Active Substance: METHYLPREDNISOLONE
     Indication: Nerve compression
     Dosage: ON 06/20/2025, CONSUMED 05 TABLETS
     Route: 048
     Dates: start: 20250620, end: 20250620
  3. METHYLPREDNISOLONE [Suspect]
     Active Substance: METHYLPREDNISOLONE
     Indication: Nerve compression
     Dosage: ON 06/21/2025, CONSUMED 04 TABLETS
     Route: 048
     Dates: start: 20250621, end: 20250621
  4. METHYLPREDNISOLONE [Suspect]
     Active Substance: METHYLPREDNISOLONE
     Indication: Nerve compression
     Dosage: 06/22/2025, CONSUMED 03 TABLETS
     Route: 048
     Dates: start: 20250622, end: 20250622
  5. DICLOFENAC [Suspect]
     Active Substance: DICLOFENAC
     Indication: Product used for unknown indication
     Dosage: UNK

REACTIONS (1)
  - Vision blurred [Not Recovered/Not Resolved]

NARRATIVE: CASE EVENT DATE: 20250622
